FAERS Safety Report 6677268-4 (Version None)
Quarter: 2010Q2

REPORT INFORMATION
  Report Type: 
  Country: None (occurrence: None)
  Receive Date: 20100412
  Receipt Date: 20100330
  Transmission Date: 20101027
  Serious: Yes (Life-Threatening, Hospitalization)
  Sender: FDA-Public Use
  Company Number: US-JNJFOC-20100306946

PATIENT
  Sex: Female
  Weight: 60.33 kg

DRUGS (8)
  1. ACETAMINOPHEN [Suspect]
     Route: 048
  2. ACETAMINOPHEN [Suspect]
     Indication: DRUG USE FOR UNKNOWN INDICATION
     Route: 048
  3. STUDY MEDICATION [Suspect]
     Indication: BACK PAIN
  4. XANAX [Suspect]
     Indication: ANXIETY
     Route: 048
  5. LOESTRIN 24 FE [Concomitant]
  6. ATENOLOL [Concomitant]
  7. E VITAMIN [Concomitant]
  8. VITAMIN B-12 [Concomitant]

REACTIONS (1)
  - SUICIDE ATTEMPT [None]
